FAERS Safety Report 13608121 (Version 2)
Quarter: 2017Q2

REPORT INFORMATION
  Report Type: Spontaneous
  Country: SE (occurrence: SE)
  Receive Date: 20170602
  Receipt Date: 20170613
  Transmission Date: 20170830
  Serious: Yes (Other)
  Sender: FDA-Public Use
  Company Number: SE-PFIZER INC-2017239211

PATIENT
  Age: 47 Year
  Sex: Male

DRUGS (1)
  1. LYRICA [Suspect]
     Active Substance: PREGABALIN
     Dosage: 900 MG, DAILY
     Dates: start: 2007

REACTIONS (4)
  - Alcohol interaction [Unknown]
  - Overdose [Unknown]
  - Alcohol poisoning [Unknown]
  - Drug use disorder [Unknown]
